FAERS Safety Report 23966801 (Version 2)
Quarter: 2024Q2

REPORT INFORMATION
  Report Type: Report from Study
  Country: US (occurrence: US)
  Receive Date: 20240612
  Receipt Date: 20240619
  Transmission Date: 20240715
  Serious: Yes (Hospitalization)
  Sender: FDA-Public Use
  Company Number: US-TAKEDA-2024TUS053456

PATIENT
  Sex: Male

DRUGS (2)
  1. PONATINIB [Suspect]
     Active Substance: PONATINIB
     Indication: Acute lymphocytic leukaemia
     Dosage: UNK UNK, QD
     Route: 048
  2. PONATINIB [Suspect]
     Active Substance: PONATINIB
     Dosage: 30 MILLIGRAM, QD
     Route: 048

REACTIONS (11)
  - Hospitalisation [Unknown]
  - Ageusia [Unknown]
  - Chromaturia [Unknown]
  - Faeces discoloured [Unknown]
  - Feeling abnormal [Unknown]
  - Dysgeusia [Unknown]
  - Dizziness [Unknown]
  - Bone pain [Unknown]
  - Haemorrhage [Unknown]
  - Paraesthesia [Unknown]
  - Incorrect dose administered [Unknown]
